FAERS Safety Report 5479124-6 (Version None)
Quarter: 2007Q4

REPORT INFORMATION
  Report Type: 
  Country: None (occurrence: None)
  Receive Date: 20071006
  Receipt Date: 20070926
  Transmission Date: 20080405
  Serious: Yes (Other)
  Sender: FDA-Public Use
  Company Number: JP-PFIZER INC-2007081729

PATIENT
  Age: 24 Year
  Sex: Male
  Weight: 59 kg

DRUGS (2)
  1. HYDROXYZINE HYDROCHLORIDE (IM) [Suspect]
     Indication: ANAESTHETIC PREMEDICATION
     Route: 030
  2. ATROPINE [Concomitant]
     Indication: ANAESTHETIC PREMEDICATION
     Route: 030

REACTIONS (1)
  - INJECTION SITE NECROSIS [None]
